FAERS Safety Report 14532718 (Version 2)
Quarter: 2019Q1

REPORT INFORMATION
  Report Type: Report from Study
  Country: US (occurrence: US)
  Receive Date: 20180214
  Receipt Date: 20190225
  Transmission Date: 20190417
  Serious: Yes (Congenital Anomaly, Other)
  Sender: FDA-Public Use
  Company Number: US-UCBSA-2018004858

PATIENT
  Age: 0 Year
  Sex: Male
  Weight: 3.11 kg

DRUGS (10)
  1. CERTOLIZUMAB PEGOL RA [Suspect]
     Active Substance: CERTOLIZUMAB PEGOL
     Indication: CROHN^S DISEASE
     Dosage: 400 MG, MONTHLY (QM)
     Route: 064
     Dates: start: 20160615, end: 20170209
  2. DHA [Concomitant]
     Active Substance: DIETARY SUPPLEMENT
     Dosage: UNK
     Route: 064
     Dates: start: 20160615, end: 20170222
  3. FLUVIRIN NOS [Concomitant]
     Active Substance: INFLUENZA VIRUS VACCINE
     Indication: INFERTILITY
     Dosage: UNK
     Dates: start: 20161013, end: 20161013
  4. VITAMIN B6 [Concomitant]
     Active Substance: PYRIDOXINE HYDROCHLORIDE
     Dosage: UNK
     Route: 064
     Dates: start: 20160921, end: 20170222
  5. PRENATAL VITAMINS [Concomitant]
     Active Substance: VITAMINS
     Indication: CROHN^S DISEASE
     Dosage: UNK
     Route: 064
     Dates: start: 20160615, end: 20170222
  6. PROGESTERONE. [Concomitant]
     Active Substance: PROGESTERONE
     Indication: INFERTILITY
     Dosage: UNK
     Route: 064
     Dates: start: 20160615, end: 20160808
  7. DTAP [Concomitant]
     Active Substance: DIPHTHERIA AND TETANUS TOXOIDS AND ACELLULAR PERTUSSIS VACCINE ADSORBED
     Indication: INFERTILITY
     Dosage: 1 DF, TOTAL
     Route: 064
     Dates: start: 20170114, end: 20170114
  8. VITAMIN B6 [Concomitant]
     Active Substance: PYRIDOXINE HYDROCHLORIDE
     Indication: INFERTILITY
     Dosage: UNK
     Route: 064
     Dates: start: 20160715, end: 20160920
  9. ESTRACE [Concomitant]
     Active Substance: ESTRADIOL
     Indication: INFERTILITY
     Dosage: UNK
     Route: 064
     Dates: start: 20160615, end: 20160808
  10. IMURAN [Concomitant]
     Active Substance: AZATHIOPRINE
     Indication: CROHN^S DISEASE
     Dosage: UNK
     Route: 064
     Dates: start: 20160615, end: 20170222

REACTIONS (3)
  - Hydronephrosis [Unknown]
  - Foetal exposure during pregnancy [Unknown]
  - Haemangioma [Unknown]

NARRATIVE: CASE EVENT DATE: 20160615
